FAERS Safety Report 25799031 (Version 1)
Quarter: 2025Q3

REPORT INFORMATION
  Report Type: Report from Study
  Country: CA (occurrence: CA)
  Receive Date: 20250913
  Receipt Date: 20250913
  Transmission Date: 20251020
  Serious: Yes (Hospitalization, Other)
  Sender: ABBVIE
  Company Number: CA-ABBVIE-6451380

PATIENT
  Age: 52 Year
  Sex: Female

DRUGS (1)
  1. HUMIRA [Suspect]
     Active Substance: ADALIMUMAB
     Indication: Crohn^s disease
     Dosage: DOSAGE FORM: SOLUTION SUBCUTANEOUS
     Route: 058

REACTIONS (27)
  - Gastritis [Unknown]
  - Sepsis [Unknown]
  - Cholelithiasis [Unknown]
  - Abdominal pain [Unknown]
  - Gastrointestinal wall thickening [Unknown]
  - Richter^s hernia [Unknown]
  - Breast disorder [Unknown]
  - Coeliac artery occlusion [Unknown]
  - Intestinal stenosis [Unknown]
  - Colitis [Unknown]
  - Large intestinal stenosis [Unknown]
  - Large intestinal ulcer [Unknown]
  - Pseudopolyposis [Unknown]
  - Anorectal polyp [Unknown]
  - Faecal calprotectin abnormal [Unknown]
  - Clostridium test positive [Unknown]
  - Diarrhoea [Unknown]
  - Nephrolithiasis [Unknown]
  - Kidney infection [Unknown]
  - Cystitis [Unknown]
  - Pyelonephritis [Unknown]
  - Septic shock [Unknown]
  - Gastric mucosa erythema [Unknown]
  - Chronic gastritis [Unknown]
  - Reactive gastropathy [Unknown]
  - Oesophagitis [Unknown]
  - Iron deficiency anaemia [Unknown]
